FAERS Safety Report 20421311 (Version 1)
Quarter: 2022Q1

REPORT INFORMATION
  Report Type: Report from Study
  Country: CA (occurrence: CA)
  Receive Date: 20220203
  Receipt Date: 20220203
  Transmission Date: 20220424
  Serious: Yes (Other)
  Sender: FDA-Public Use
  Company Number: CA-JNJFOC-20161014623

PATIENT
  Age: 60 Year
  Sex: Male
  Weight: 90 kg

DRUGS (2)
  1. REMICADE [Suspect]
     Active Substance: INFLIXIMAB
     Indication: Hidradenitis
     Route: 042
     Dates: start: 20151003
  2. REMICADE [Suspect]
     Active Substance: INFLIXIMAB
     Route: 042

REACTIONS (5)
  - Sepsis [Unknown]
  - Cellulitis [Recovered/Resolved]
  - Peripheral swelling [Recovered/Resolved]
  - Off label use [Unknown]
  - Product use in unapproved indication [Unknown]

NARRATIVE: CASE EVENT DATE: 20151003
